FAERS Safety Report 21758869 (Version 1)
Quarter: 2022Q4

REPORT INFORMATION
  Report Type: Other
  Country: GB (occurrence: None)
  Receive Date: 20221221
  Receipt Date: 20221221
  Transmission Date: 20230113
  Serious: Yes (Other)
  Sender: FDA-Public Use
  Company Number: GB-ROCHE-3246185

PATIENT
  Age: 61 Year
  Sex: Female

DRUGS (6)
  1. TOCILIZUMAB [Suspect]
     Active Substance: TOCILIZUMAB
     Indication: Rheumatoid arthritis
     Route: 058
     Dates: start: 202105
  2. THYROXINE [Concomitant]
     Active Substance: LEVOTHYROXINE
  3. TRAMADOL [Concomitant]
     Active Substance: TRAMADOL
  4. NAPROXEN [Concomitant]
     Active Substance: NAPROXEN
  5. OMEPRAZOLE [Concomitant]
     Active Substance: OMEPRAZOLE
  6. AMLODIPINE [Concomitant]
     Active Substance: AMLODIPINE BESYLATE

REACTIONS (1)
  - Pneumothorax [Unknown]
